FAERS Safety Report 9472045 (Version 1)
Quarter: 2013Q3

REPORT INFORMATION
  Report Type: Spontaneous
  Country: US (occurrence: US)
  Receive Date: 20130823
  Receipt Date: 20130823
  Transmission Date: 20140515
  Serious: No
  Sender: FDA-Public Use
  Company Number: US-BIOGENIDEC-2013BI076280

PATIENT
  Age: 40 Year
  Sex: Female

DRUGS (1)
  1. AVONEX [Suspect]
     Indication: MULTIPLE SCLEROSIS
     Route: 030
     Dates: start: 20130626

REACTIONS (4)
  - Underdose [Recovered/Resolved]
  - Contusion [Recovered/Resolved]
  - Exposure via direct contact [Recovered/Resolved]
  - Pain [Recovered/Resolved]
